FAERS Safety Report 5505460-0 (Version None)
Quarter: 2007Q4

REPORT INFORMATION
  Report Type: 
  Country: None (occurrence: None)
  Receive Date: 20071030
  Receipt Date: 20070802
  Transmission Date: 20080405
  Serious: No
  Sender: FDA-Public Use
  Company Number: 266130

PATIENT
  Age: 80 Year
  Sex: Female

DRUGS (3)
  1. LEVEMIR [Suspect]
     Indication: TYPE 1 DIABETES MELLITUS
     Dosage: QD, SUBCUTANEOUS
     Route: 058
  2. NOVOLOG FLEXPEN (INSULIN ASPART) SOLUTION [Concomitant]
  3. SYMLIN [Concomitant]

REACTIONS (1)
  - BLOOD GLUCOSE INCREASED [None]
